FAERS Safety Report 14112982 (Version 2)
Quarter: 2019Q2

REPORT INFORMATION
  Report Type: Spontaneous
  Country: US (occurrence: US)
  Receive Date: 20171022
  Receipt Date: 20190411
  Transmission Date: 20190711
  Serious: No
  Sender: FDA-Public Use
  Company Number: US-CELGENEUS-USA-2015116117

PATIENT
  Sex: Male
  Weight: 73 kg

DRUGS (14)
  1. REVLIMID [Suspect]
     Active Substance: LENALIDOMIDE
     Indication: PLASMA CELL MYELOMA
     Route: 048
     Dates: start: 201410
  2. ACYCLOVIR. [Concomitant]
     Active Substance: ACYCLOVIR
     Indication: PRODUCT USED FOR UNKNOWN INDICATION
     Dosage: 800 MILLIGRAM
     Route: 065
  3. ASPIRIN. [Concomitant]
     Active Substance: ASPIRIN
     Indication: PRODUCT USED FOR UNKNOWN INDICATION
     Dosage: 81 MILLIGRAM
     Route: 065
  4. LEVOFLOXACIN. [Concomitant]
     Active Substance: LEVOFLOXACIN
     Indication: RESPIRATORY TRACT INFECTION
     Route: 065
  5. ZANTAC [Concomitant]
     Active Substance: RANITIDINE HYDROCHLORIDE
     Indication: GASTROOESOPHAGEAL REFLUX DISEASE
     Route: 065
  6. PRILOSEC [Concomitant]
     Active Substance: OMEPRAZOLE MAGNESIUM
     Indication: GASTROOESOPHAGEAL REFLUX DISEASE
     Route: 065
  7. DEXAMETHASONE. [Suspect]
     Active Substance: DEXAMETHASONE
     Indication: PLASMA CELL MYELOMA
     Dosage: 18 MILLIGRAM
     Route: 048
  8. REVLIMID [Suspect]
     Active Substance: LENALIDOMIDE
     Dosage: 5 MILLIGRAM
     Route: 048
     Dates: start: 201510
  9. VELCADE [Concomitant]
     Active Substance: BORTEZOMIB
     Indication: PLASMA CELL MYELOMA
     Route: 065
  10. REVLIMID [Suspect]
     Active Substance: LENALIDOMIDE
     Dosage: 10 MILLIGRAMS
     Route: 048
     Dates: start: 20150201
  11. REVLIMID [Suspect]
     Active Substance: LENALIDOMIDE
     Dosage: 15 MILLIGRAM
     Route: 048
     Dates: start: 201510, end: 201512
  12. REVLIMID [Suspect]
     Active Substance: LENALIDOMIDE
     Dosage: 10 MILLIGRAM
     Route: 048
     Dates: start: 201411
  13. CALCIUM CITRATE [Concomitant]
     Active Substance: CALCIUM CITRATE
     Indication: NEPHROLITHIASIS
     Route: 065
  14. BABY ASPIRIN [Concomitant]
     Active Substance: ASPIRIN
     Indication: PRODUCT USED FOR UNKNOWN INDICATION
     Route: 065

REACTIONS (5)
  - Therapeutic product effect incomplete [Unknown]
  - Libido decreased [Unknown]
  - Nightmare [Recovered/Resolved]
  - Swelling [Unknown]
  - Plasma cell myeloma recurrent [Not Recovered/Not Resolved]

NARRATIVE: CASE EVENT DATE: 2015
